FAERS Safety Report 11310019 (Version 1)
Quarter: 2015Q3

REPORT INFORMATION
  Report Type: Spontaneous
  Country: DE (occurrence: DE)
  Receive Date: 20150724
  Receipt Date: 20150724
  Transmission Date: 20151125
  Serious: Yes (Other)
  Sender: FDA-Public Use
  Company Number: DE-UCBSA-123046

PATIENT
  Sex: Female

DRUGS (3)
  1. VIMPAT [Suspect]
     Active Substance: LACOSAMIDE
     Dosage: 100 MG, 2 TABLETS; TOTAL AMOUNT: 200MG
     Route: 048
  2. KEPPRA [Suspect]
     Active Substance: LEVETIRACETAM
     Dosage: 1000MG, 4 TABLETS; TOTAL AMOUNT: 4000MG
     Route: 048
  3. LYRICA [Suspect]
     Active Substance: PREGABALIN
     Dosage: 75MG 2 CAPSULES; TOTAL AMOUNT: 150MG
     Route: 048

REACTIONS (2)
  - Overdose [Unknown]
  - Accidental exposure to product [Unknown]
